FAERS Safety Report 17973266 (Version 7)
Quarter: 2020Q4

REPORT INFORMATION
  Report Type: Report from Study
  Country: None (occurrence: US)
  Receive Date: 20200702
  Receipt Date: 20201221
  Transmission Date: 20210113
  Serious: Yes (Hospitalization, Other)
  Sender: FDA-Public Use
  Company Number: US-INSMED, INC.-US-INS-19-03884

PATIENT
  Age: 66 Year
  Sex: Female
  Weight: 55.33 kg

DRUGS (3)
  1. ARIKAYCE [Suspect]
     Active Substance: AMIKACIN
     Indication: MYCOBACTERIUM AVIUM COMPLEX INFECTION
     Route: 055
     Dates: start: 201911, end: 2020
  2. ARIKAYCE [Suspect]
     Active Substance: AMIKACIN
     Indication: BRONCHIECTASIS
     Route: 055
     Dates: start: 2020, end: 20200701
  3. ARIKAYCE [Suspect]
     Active Substance: AMIKACIN
     Route: 055
     Dates: start: 2020, end: 202011

REACTIONS (22)
  - Cough [Recovered/Resolved]
  - Red blood cell count decreased [Not Recovered/Not Resolved]
  - Sneezing [Recovering/Resolving]
  - Pyrexia [Recovering/Resolving]
  - Hypoacusis [Not Recovered/Not Resolved]
  - Tinnitus [Not Recovered/Not Resolved]
  - Influenza like illness [Recovering/Resolving]
  - Intentional dose omission [Unknown]
  - Cough [Not Recovered/Not Resolved]
  - Osteomyelitis [Not Recovered/Not Resolved]
  - Surgery [Unknown]
  - Ear discomfort [Not Recovered/Not Resolved]
  - Diarrhoea [Recovering/Resolving]
  - Platelet count decreased [Not Recovered/Not Resolved]
  - White blood cell count decreased [Not Recovered/Not Resolved]
  - Myalgia [Recovering/Resolving]
  - Dyspnoea [Not Recovered/Not Resolved]
  - Therapy interrupted [Unknown]
  - Ear congestion [Not Recovered/Not Resolved]
  - Rhinorrhoea [Recovering/Resolving]
  - Hospitalisation [Unknown]
  - Productive cough [Recovered/Resolved]

NARRATIVE: CASE EVENT DATE: 2019
